FAERS Safety Report 24313920 (Version 1)
Quarter: 2024Q3

REPORT INFORMATION
  Report Type: Spontaneous
  Country: PL (occurrence: PL)
  Receive Date: 20240912
  Receipt Date: 20240912
  Transmission Date: 20241016
  Serious: Yes (Other)
  Sender: SANDOZ
  Company Number: None

PATIENT
  Age: 56 Year
  Sex: Female

DRUGS (5)
  1. BASILIXIMAB [Suspect]
     Active Substance: BASILIXIMAB
     Indication: Immunosuppression
     Route: 065
  2. MYCOPHENOLATE MOFETIL [Suspect]
     Active Substance: MYCOPHENOLATE MOFETIL
     Indication: Immunosuppression
     Route: 065
  3. PREDNISONE [Suspect]
     Active Substance: PREDNISONE
     Indication: Transplant
     Route: 065
  4. PREDNISONE [Suspect]
     Active Substance: PREDNISONE
     Indication: Immunosuppression
  5. TACROLIMUS [Suspect]
     Active Substance: TACROLIMUS
     Indication: Immunosuppression
     Route: 065

REACTIONS (9)
  - Chronic kidney disease [Unknown]
  - Dyslipidaemia [Unknown]
  - Disease progression [Unknown]
  - Renal disorder [Unknown]
  - Left ventricular dysfunction [Unknown]
  - Left ventricular hypertrophy [Unknown]
  - Diabetes mellitus [Not Recovered/Not Resolved]
  - Hyperuricaemia [Unknown]
  - Hypertension [Unknown]
